FAERS Safety Report 9735631 (Version 1)
Quarter: 2013Q4

REPORT INFORMATION
  Report Type: Spontaneous
  Country: US (occurrence: None)
  Receive Date: 20131205
  Receipt Date: 20131205
  Transmission Date: 20140711
  Serious: No
  Sender: FDA-Public Use
  Company Number: None

PATIENT
  Age: 59 Year
  Sex: Male
  Weight: 77.93 kg

DRUGS (2)
  1. CARBOPLATIN [Suspect]
     Dosage: CYCLE=21 DAYS: REGIMEN 1A CARBO
     Dates: start: 20130816, end: 20131203
  2. DOCETAXEL [Suspect]
     Dates: start: 20130816, end: 20131203

REACTIONS (1)
  - Lymphocyte count decreased [None]
